FAERS Safety Report 7300739-4 (Version None)
Quarter: 2011Q1

REPORT INFORMATION
  Report Type: 
  Country: None (occurrence: None)
  Receive Date: 20110207
  Receipt Date: 20110131
  Transmission Date: 20110831
  Serious: Yes (Death, Other)
  Sender: FDA-Public Use
  Company Number: 2006SP008889

PATIENT
  Age: 68 Year
  Sex: Male
  Weight: 48 kg

DRUGS (7)
  1. NEW LECICARBON [Concomitant]
  2. TEMODAL [Suspect]
     Indication: GLIOBLASTOMA MULTIFORME
     Dosage: 75 MG/M2;QD;PO
     Route: 048
     Dates: start: 20060921, end: 20061012
  3. TEMODAL [Suspect]
     Indication: NEOPLASM RECURRENCE
     Dosage: 75 MG/M2;QD;PO
     Route: 048
     Dates: start: 20060921, end: 20061012
  4. DEPAKENE [Concomitant]
  5. DECADRON [Suspect]
     Indication: GLIOBLASTOMA MULTIFORME
     Dosage: PO
     Route: 048
     Dates: start: 20060814, end: 20061112
  6. DECADRON [Suspect]
     Indication: NEOPLASM RECURRENCE
     Dosage: PO
     Route: 048
     Dates: start: 20060814, end: 20061112
  7. PERDIPINE-LA [Concomitant]

REACTIONS (5)
  - TREATMENT FAILURE [None]
  - IMMUNODEFICIENCY [None]
  - PANCYTOPENIA [None]
  - CONDITION AGGRAVATED [None]
  - BRONCHOPULMONARY ASPERGILLOSIS [None]
